FAERS Safety Report 10011600 (Version 1)
Quarter: 2014Q1

REPORT INFORMATION
  Report Type: Spontaneous
  Country: JP (occurrence: JP)
  Receive Date: 20140314
  Receipt Date: 20140314
  Transmission Date: 20141002
  Serious: Yes (Other)
  Sender: FDA-Public Use
  Company Number: JP-ASTELLAS-2014JP002248

PATIENT
  Age: 13 Year
  Sex: Male

DRUGS (8)
  1. TACROLIMUS [Suspect]
     Indication: PROPHYLAXIS AGAINST GRAFT VERSUS HOST DISEASE
     Route: 065
  2. FLUDARABINE [Concomitant]
     Indication: PREMEDICATION
     Dosage: 100 MG/M2, UNKNOWN/D
     Route: 065
  3. FLUDARABINE [Concomitant]
     Dosage: 90 MG/M2, UNKNOWN/D
     Route: 065
  4. CYCLOPHOSPHAMIDE [Concomitant]
     Indication: PREMEDICATION
     Dosage: 3000 MG/M2, UNKNOWN/D
     Route: 065
  5. CYCLOPHOSPHAMIDE [Concomitant]
     Dosage: 60 MG/KG, UNKNOWN/D
     Route: 065
  6. CICLOSPORIN A [Concomitant]
     Indication: PROPHYLAXIS AGAINST GRAFT VERSUS HOST DISEASE
     Route: 065
  7. MYCOPHENOLATE MOFETIL [Concomitant]
     Indication: PROPHYLAXIS AGAINST GRAFT VERSUS HOST DISEASE
     Route: 065
  8. MYCOPHENOLATE MOFETIL [Concomitant]
     Route: 065

REACTIONS (2)
  - Drug ineffective [Unknown]
  - Graft versus host disease [Unknown]
